FAERS Safety Report 9149424 (Version 2)
Quarter: 2013Q1

REPORT INFORMATION
  Report Type: Report from Study
  Country: US (occurrence: US)
  Receive Date: 20130308
  Receipt Date: 20130318
  Transmission Date: 20140127
  Serious: Yes (Hospitalization)
  Sender: FDA-Public Use
  Company Number: US-JNJFOC-20130300138

PATIENT
  Age: 17 Year
  Sex: Female
  Weight: 48.4 kg

DRUGS (5)
  1. REMICADE [Suspect]
     Indication: INFLAMMATORY BOWEL DISEASE
     Route: 042
     Dates: start: 20090603
  2. 6-MP [Concomitant]
     Route: 065
  3. PRENATAL VITAMIN [Concomitant]
     Route: 065
  4. FOLATE [Concomitant]
     Route: 065
  5. MULTIPLE VITAMIN [Concomitant]
     Route: 065

REACTIONS (1)
  - Colitis [Recovered/Resolved]
